FAERS Safety Report 10472308 (Version 1)
Quarter: 2014Q3

REPORT INFORMATION
  Report Type: Spontaneous
  Country: US (occurrence: None)
  Receive Date: 20140922
  Receipt Date: 20140922
  Transmission Date: 20150326
  Serious: Yes (Hospitalization)
  Sender: FDA-Public Use
  Company Number: 2014SCAL000101

PATIENT
  Age: 71 Year
  Sex: Female

DRUGS (2)
  1. BUPROPION (BUPROPION) [Suspect]
     Active Substance: BUPROPION
     Indication: PRODUCT USED FOR UNKNOWN INDICATION
  2. LAMOTRIGINE (LAMOTRIGINE) TABLET [Suspect]
     Active Substance: LAMOTRIGINE
     Indication: PRODUCT USED FOR UNKNOWN INDICATION

REACTIONS (10)
  - Status epilepticus [None]
  - Tonic clonic movements [None]
  - Disorientation [None]
  - Agitation [None]
  - Muscle twitching [None]
  - Excessive eye blinking [None]
  - Unresponsive to stimuli [None]
  - Mental status changes [None]
  - Intentional overdose [None]
  - Convulsion [None]
